FAERS Safety Report 5009642-6 (Version None)
Quarter: 2006Q2

REPORT INFORMATION
  Report Type: 
  Country: None (occurrence: None)
  Receive Date: 20060524
  Receipt Date: 20060502
  Transmission Date: 20061013
  Serious: Yes (Death, Hospitalization)
  Sender: FDA-Public Use
  Company Number: SE-GLAXOSMITHKLINE-B0423271A

PATIENT
  Age: 92 Year
  Sex: Female

DRUGS (9)
  1. ZINACEF [Suspect]
     Indication: URINARY TRACT INFECTION
     Dosage: 2.2G PER DAY
     Route: 042
     Dates: start: 20051202, end: 20051205
  2. ALLOPURINOL [Suspect]
     Indication: DRUG USE FOR UNKNOWN INDICATION
     Dosage: 100MG PER DAY
     Route: 048
     Dates: start: 20051208
  3. REMERON [Suspect]
     Dosage: 30MG PER DAY
     Route: 048
     Dates: start: 20051001, end: 20051207
  4. ENALAPRIL [Suspect]
     Indication: HYPERTONIA
     Dosage: 2.5MG PER DAY
     Route: 048
     Dates: start: 20051118, end: 20051208
  5. DIFLUCAN [Suspect]
     Indication: FUNGAL INFECTION
     Dosage: 50MG PER DAY
     Route: 048
     Dates: start: 20051118, end: 20051126
  6. XYLOCAINE [Concomitant]
     Route: 045
  7. DUPHALAC [Concomitant]
     Route: 048
  8. UNSPECIFIED MEDICATION [Concomitant]
  9. SELEXIDIN [Concomitant]
     Indication: URINARY TRACT INFECTION

REACTIONS (2)
  - AGRANULOCYTOSIS [None]
  - RASH [None]
